FAERS Safety Report 7125921-0 (Version None)
Quarter: 2010Q4

REPORT INFORMATION
  Report Type: 
  Country: None (occurrence: None)
  Receive Date: 20101129
  Receipt Date: 20101124
  Transmission Date: 20110411
  Serious: Yes (Death)
  Sender: FDA-Public Use
  Company Number: TR-BRACCO-000029

PATIENT
  Age: 77 Year
  Sex: Male

DRUGS (2)
  1. BARIUM SULFATE [Suspect]
     Indication: DYSPHAGIA
  2. BARIUM SULFATE [Suspect]
     Indication: DIAGNOSTIC PROCEDURE

REACTIONS (6)
  - ACUTE RESPIRATORY DISTRESS SYNDROME [None]
  - ASPIRATION [None]
  - BLOOD PRESSURE DECREASED [None]
  - MULTI-ORGAN FAILURE [None]
  - SEPTIC SHOCK [None]
  - SOMNOLENCE [None]
